FAERS Safety Report 15195276 (Version 2)
Quarter: 2018Q3

REPORT INFORMATION
  Report Type: Spontaneous
  Country: GB (occurrence: GB)
  Receive Date: 20180725
  Receipt Date: 20180828
  Transmission Date: 20181010
  Serious: No
  Sender: FDA-Public Use
  Company Number: GB-AUROBINDO-AUR-APL-2018-035045

PATIENT
  Age: 64 Year
  Sex: Male

DRUGS (3)
  1. PARACETAMOL SOLUABLE TABLET [Suspect]
     Active Substance: ACETAMINOPHEN
     Indication: ANALGESIC THERAPY
     Dosage: 500 MILLIGRAM, 2 X 500MG
     Route: 065
     Dates: start: 20180616
  2. FENCINO [Concomitant]
     Indication: PAIN
     Dosage: 25 MICROGRAM, 25MCG EVERY 72HOURS
     Route: 065
  3. HALOPERIDOL. [Concomitant]
     Active Substance: HALOPERIDOL
     Indication: MALAISE
     Dosage: 1.5 MICROGRAM, ONCE A DAY
     Route: 065

REACTIONS (1)
  - Malaise [Unknown]

NARRATIVE: CASE EVENT DATE: 20180616
